FAERS Safety Report 6894186-7 (Version None)
Quarter: 2010Q3

REPORT INFORMATION
  Report Type: 
  Country: None (occurrence: None)
  Receive Date: 20100802
  Receipt Date: 20100714
  Transmission Date: 20110219
  Serious: Yes (Hospitalization)
  Sender: FDA-Public Use
  Company Number: GB-RANBAXY-2010RR-35890

PATIENT
  Age: 50 Year
  Sex: Male

DRUGS (3)
  1. ASPIRIN [Suspect]
     Indication: HEMIPARESIS
  2. DIPYRIDAMOLE [Suspect]
     Indication: HEMIPARESIS
  3. SIMVASTATIN [Suspect]
     Indication: HEMIPARESIS

REACTIONS (12)
  - ASTHENIA [None]
  - CAROTID ARTERY OCCLUSION [None]
  - CEREBRAL HYPOPERFUSION [None]
  - CEREBRAL INFARCTION [None]
  - CEREBROVASCULAR ACCIDENT [None]
  - COGNITIVE DISORDER [None]
  - CONVULSION [None]
  - DYSKINESIA [None]
  - EPILEPSY [None]
  - INFARCTION [None]
  - LOSS OF CONSCIOUSNESS [None]
  - PARTIAL SEIZURES [None]
